FAERS Safety Report 4422768-0 (Version None)
Quarter: 2004Q3

REPORT INFORMATION
  Report Type: 
  Country: None (occurrence: None)
  Receive Date: 20040713
  Receipt Date: 20030625
  Transmission Date: 20050211
  Serious: No
  Sender: FDA-Public Use
  Company Number: PHEH2003US05382

PATIENT
  Age: 6 Month
  Sex: Male

DRUGS (1)
  1. ELIDEL [Suspect]
     Indication: DRY SKIN
     Dosage: BID, TOPICAL
     Route: 061
     Dates: start: 20030621, end: 20030623

REACTIONS (3)
  - FLATULENCE [None]
  - LOOSE STOOLS [None]
  - VOMITING [None]
